FAERS Safety Report 24104288 (Version 1)
Quarter: 2024Q3

REPORT INFORMATION
  Report Type: Report from Study
  Country: IN (occurrence: IN)
  Receive Date: 20240717
  Receipt Date: 20240717
  Transmission Date: 20241017
  Serious: Yes (Other)
  Sender: MYLAN
  Company Number: IN-MYLANLABS-2024M1065925

PATIENT

DRUGS (1)
  1. TRAMADOL [Suspect]
     Active Substance: TRAMADOL\TRAMADOL HYDROCHLORIDE
     Indication: Chills
     Dosage: 0.5 MILLIGRAM/KILOGRAM
     Route: 042

REACTIONS (2)
  - Bradycardia [Unknown]
  - Off label use [Unknown]
